FAERS Safety Report 10267400 (Version 2)
Quarter: 2014Q2

REPORT INFORMATION
  Report Type: Report from Study
  Country: US (occurrence: US)
  Receive Date: 20140630
  Receipt Date: 20140630
  Transmission Date: 20141212
  Serious: Yes (Other)
  Sender: FDA-Public Use
  Company Number: US-ROCHE-1347451

PATIENT
  Age: 32 Year
  Sex: Male

DRUGS (7)
  1. METFORMIN [Suspect]
     Indication: PRODUCT USED FOR UNKNOWN INDICATION
     Route: 065
  2. KLONOPIN [Suspect]
     Indication: PRODUCT USED FOR UNKNOWN INDICATION
     Route: 065
  3. SAPHRIS [Concomitant]
  4. HALDOL [Concomitant]
  5. PROZAC [Concomitant]
  6. VITAMIN C [Concomitant]
  7. FISH OIL [Concomitant]

REACTIONS (1)
  - Suicidal ideation [Recovering/Resolving]
